FAERS Safety Report 5399436-4 (Version None)
Quarter: 2007Q3

REPORT INFORMATION
  Report Type: 
  Country: None (occurrence: None)
  Receive Date: 20070727
  Receipt Date: 20070719
  Transmission Date: 20080115
  Serious: Yes (Hospitalization)
  Sender: FDA-Public Use
  Company Number: B0479843A

PATIENT
  Age: 49 Year
  Sex: Female

DRUGS (3)
  1. NICABATE CQ CLEAR 21MG [Suspect]
     Indication: SMOKING CESSATION THERAPY
     Dosage: 21MG SINGLE DOSE
     Route: 062
     Dates: start: 20070706, end: 20070706
  2. TEGRETOL [Concomitant]
     Indication: NERVE INJURY
  3. RABEPRAZOLE SODIUM [Concomitant]
     Indication: ILL-DEFINED DISORDER

REACTIONS (6)
  - HEADACHE [None]
  - INSOMNIA [None]
  - MALAISE [None]
  - OVERDOSE [None]
  - VISION BLURRED [None]
  - VOMITING [None]
